FAERS Safety Report 14733303 (Version 1)
Quarter: 2018Q2

REPORT INFORMATION
  Report Type: Spontaneous
  Country: AU (occurrence: AU)
  Receive Date: 20180409
  Receipt Date: 20180409
  Transmission Date: 20180711
  Serious: Yes (Hospitalization, Other)
  Sender: FDA-Public Use
  Company Number: AU-ACCORD-065385

PATIENT
  Age: 31 Year
  Sex: Female

DRUGS (1)
  1. ONDANSETRON [Suspect]
     Active Substance: ONDANSETRON
     Indication: NAUSEA
     Route: 042

REACTIONS (1)
  - Acute coronary syndrome [Recovered/Resolved]
